FAERS Safety Report 5911667-0 (Version None)
Quarter: 2008Q4

REPORT INFORMATION
  Report Type: 
  Country: None (occurrence: None)
  Receive Date: 20081003
  Receipt Date: 20080925
  Transmission Date: 20090506
  Serious: Yes (Death, Other)
  Sender: FDA-Public Use
  Company Number: 2008BI017560

PATIENT
  Sex: Male
  Weight: 108.8633 kg

DRUGS (2)
  1. ZEVALIN [Suspect]
     Indication: LYMPHOMA
     Dates: start: 20060301, end: 20060301
  2. RITUXIMAB [Concomitant]

REACTIONS (7)
  - 5Q MINUS SYNDROME [None]
  - BACTERIAL SEPSIS [None]
  - DEEP VEIN THROMBOSIS [None]
  - IMMOBILE [None]
  - OSTEOARTHRITIS [None]
  - POST PROCEDURAL COMPLICATION [None]
  - RETROPERITONEAL HAEMORRHAGE [None]
